FAERS Safety Report 26099979 (Version 1)
Quarter: 2025Q4

REPORT INFORMATION
  Report Type: Spontaneous
  Country: CA (occurrence: CA)
  Receive Date: 20251128
  Receipt Date: 20251128
  Transmission Date: 20260118
  Serious: Yes (Other)
  Sender: ROCHE
  Company Number: CA-002147023-NVSC2025CA177870

PATIENT
  Age: 55 Year
  Sex: Female

DRUGS (3)
  1. XOLAIR [Suspect]
     Active Substance: OMALIZUMAB
     Indication: Chronic spontaneous urticaria
     Dosage: 300 MG
     Route: 058
  2. XOLAIR [Suspect]
     Active Substance: OMALIZUMAB
     Dosage: 150 MG (1 EVERY 2 WEEKS)
     Route: 058
  3. CANDESARTAN [Suspect]
     Active Substance: CANDESARTAN
     Indication: Product used for unknown indication
     Dosage: UNK
     Route: 048

REACTIONS (30)
  - Asthma [Unknown]
  - Back injury [Unknown]
  - Blood pressure increased [Unknown]
  - Cough [Unknown]
  - Cyst [Unknown]
  - Discomfort [Unknown]
  - Dizziness [Unknown]
  - Erythema [Unknown]
  - Fatigue [Unknown]
  - Headache [Unknown]
  - Incorrect dose administered [Unknown]
  - Lethargy [Unknown]
  - Nasopharyngitis [Unknown]
  - Nausea [Unknown]
  - Oral herpes [Unknown]
  - Paraesthesia [Unknown]
  - Peripheral swelling [Unknown]
  - Pneumonia [Unknown]
  - Product availability issue [Unknown]
  - Productive cough [Unknown]
  - Pruritus [Unknown]
  - Psoriasis [Unknown]
  - Sluggishness [Unknown]
  - Somnolence [Unknown]
  - Stress [Unknown]
  - Tenderness [Unknown]
  - Urticaria [Unknown]
  - Vertigo [Unknown]
  - Vomiting projectile [Unknown]
  - Weight decreased [Unknown]
